FAERS Safety Report 8046701-8 (Version None)
Quarter: 2012Q1

REPORT INFORMATION
  Report Type: 
  Country: None (occurrence: None)
  Receive Date: 20120116
  Receipt Date: 20120105
  Transmission Date: 20120608
  Serious: Yes (Other)
  Sender: FDA-Public Use
  Company Number: DE-AMGEN-DEUSP2011063043

PATIENT
  Age: 29 Year
  Sex: Female
  Weight: 36 kg

DRUGS (3)
  1. ENBREL [Suspect]
     Indication: JUVENILE ARTHRITIS
     Dosage: 25 MG, TWICE WEEKLY
     Route: 058
     Dates: start: 20000101
  2. INDOMETHACIN [Concomitant]
     Indication: JUVENILE ARTHRITIS
     Dosage: 25 MG, 2X/DAY
     Route: 048
     Dates: start: 20000101
  3. METHYLPREDNISOLONE [Concomitant]
     Indication: JUVENILE ARTHRITIS
     Dosage: 2 MG, DAILY
     Route: 048
     Dates: start: 20000101

REACTIONS (1)
  - ECTOPIC PREGNANCY [None]
